FAERS Safety Report 14833670 (Version 1)
Quarter: 2018Q2

REPORT INFORMATION
  Report Type: Spontaneous
  Country: US (occurrence: US)
  Receive Date: 20180412
  Receipt Date: 20180412
  Transmission Date: 20180711
  Serious: No
  Sender: FDA-Public Use
  Company Number: None

PATIENT
  Age: 47 Year
  Sex: Male
  Weight: 89.1 kg

DRUGS (1)
  1. BUMETANIDE. [Suspect]
     Active Substance: BUMETANIDE
     Indication: FLUID RETENTION
     Route: 048
     Dates: start: 20180408, end: 20180412

REACTIONS (3)
  - Weight increased [None]
  - Product substitution issue [None]
  - Product measured potency issue [None]

NARRATIVE: CASE EVENT DATE: 20180412
